FAERS Safety Report 7245612-5 (Version None)
Quarter: 2011Q1

REPORT INFORMATION
  Report Type: 
  Country: None (occurrence: None)
  Receive Date: 20110126
  Receipt Date: 20110113
  Transmission Date: 20110831
  Serious: Yes (Other)
  Sender: FDA-Public Use
  Company Number: PHHY2011GR03451

PATIENT
  Age: 61 Year
  Sex: Female
  Weight: 78 kg

DRUGS (13)
  1. DEXAMETHASONE [Concomitant]
     Dosage: 20 MG,  ONCE IN 2 WEEKS
     Route: 042
     Dates: start: 20061023, end: 20070425
  2. METHOTREXATE [Suspect]
     Indication: BREAST CANCER
     Dosage: 102 MG,  ONCE IN 2 WEEKS
     Route: 042
     Dates: start: 20061206, end: 20061206
  3. ZANTAC [Concomitant]
     Dosage: 150 MG, BIW
     Route: 042
     Dates: start: 20061023, end: 20070425
  4. FLUOROURACIL [Suspect]
     Indication: BREAST CANCER
     Dosage: 1812 MG,  ONCE IN 2 WEEKS
     Route: 042
     Dates: start: 20061206, end: 20061206
  5. FENISTIL [Concomitant]
     Dosage: 4 MG, ONCE IN 2 WEEKS
     Route: 042
     Dates: start: 20061023, end: 20070425
  6. ENDOXAN [Suspect]
     Indication: BREAST CANCER
     Dosage: 1812 MG,  ONCE IN 2 WEEKS
     Dates: start: 20061206, end: 20061206
  7. GRANOCYTE [Concomitant]
     Indication: PROPHYLAXIS
     Dosage: 263 UG,  ONCE IN 2 WEEKS
     Dates: start: 20061023, end: 20070124
  8. FLUOROURACIL [Suspect]
     Dosage: 1359 MG, ONCE IN 2 WEEKS
     Route: 042
     Dates: start: 20061227, end: 20070124
  9. ENDOXAN [Suspect]
     Dosage: 1359 MG, ONCE IN 2 WEEKS
     Route: 042
     Dates: start: 20061227, end: 20070124
  10. ZOFRON [Concomitant]
     Dosage: 8 MG, BIW
     Route: 042
     Dates: start: 20061023, end: 20070425
  11. GRANOCYTE [Concomitant]
     Dosage: 263 UG, BIW
     Dates: start: 20070307, end: 20070425
  12. METHOTREXATE [Suspect]
     Dosage: 76.5 MG,  ONCE IN 2 WEEKS
     Route: 042
     Dates: start: 20061227, end: 20100124
  13. THYROHORMONE [Concomitant]
     Indication: HYPOTHYROIDISM
     Dosage: 0.1 MG, QD
     Route: 048

REACTIONS (1)
  - FEBRILE NEUTROPENIA [None]
